FAERS Safety Report 19145950 (Version 1)
Quarter: 2021Q2

REPORT INFORMATION
  Report Type: Spontaneous
  Country: US (occurrence: US)
  Receive Date: 20210416
  Receipt Date: 20210416
  Transmission Date: 20210717
  Serious: No
  Sender: FDA-Public Use
  Company Number: US-TORRENT-00011039

PATIENT
  Sex: Female

DRUGS (1)
  1. ROSUVASTATIN. [Suspect]
     Active Substance: ROSUVASTATIN
     Indication: BLOOD CHOLESTEROL
     Dosage: TAKING FOR A COUPLE OF MONTHS
     Dates: start: 2021, end: 2021

REACTIONS (4)
  - Feeling cold [Unknown]
  - Pain in extremity [Unknown]
  - Therapy cessation [Unknown]
  - Feeling hot [Unknown]

NARRATIVE: CASE EVENT DATE: 2021
